FAERS Safety Report 21028482 (Version 1)
Quarter: 2022Q2

REPORT INFORMATION
  Report Type: Spontaneous
  Country: US (occurrence: US)
  Receive Date: 20220630
  Receipt Date: 20220630
  Transmission Date: 20220721
  Serious: No
  Sender: FDA-Public Use
  Company Number: US-JUBILANT CADISTA PHARMACEUTICALS-2021JUB00273

PATIENT
  Sex: Female

DRUGS (1)
  1. MECLIZINE HYDROCHLORIDE [Suspect]
     Active Substance: MECLIZINE HYDROCHLORIDE

REACTIONS (4)
  - Urinary retention [Unknown]
  - Dizziness [Unknown]
  - Vision blurred [Unknown]
  - Unevaluable event [Unknown]
